FAERS Safety Report 13488035 (Version 1)
Quarter: 2017Q2

REPORT INFORMATION
  Report Type: Spontaneous
  Country: US (occurrence: US)
  Receive Date: 20170426
  Receipt Date: 20170426
  Transmission Date: 20170830
  Serious: No
  Sender: FDA-Public Use
  Company Number: US-ALKERMES INC.-ALK-2016-002409

PATIENT
  Age: 38 Year
  Sex: Female

DRUGS (1)
  1. VIVITROL [Suspect]
     Active Substance: NALTREXONE
     Indication: DRUG USE DISORDER
     Dosage: 380 MG, Q 1 MONTHS
     Route: 030

REACTIONS (6)
  - Cough [Unknown]
  - Throat tightness [Unknown]
  - Fatigue [Unknown]
  - Influenza like illness [Unknown]
  - Urinary tract infection [Unknown]
  - Abdominal discomfort [Unknown]

NARRATIVE: CASE EVENT DATE: 20160817
